FAERS Safety Report 9440763 (Version 3)
Quarter: 2013Q3

REPORT INFORMATION
  Report Type: Spontaneous
  Country: DE (occurrence: None)
  Receive Date: 20130801
  Receipt Date: 20130813
  Transmission Date: 20140515
  Serious: Yes (Other)
  Sender: FDA-Public Use
  Company Number: 1307DEU009104

PATIENT
  Age: 60 Year
  Sex: Male
  Weight: 96 kg

DRUGS (4)
  1. KEIMAX [Suspect]
     Indication: PNEUMONIA
     Route: 048
     Dates: start: 20130308, end: 20130318
  2. STROPHANTHIN-K (STROPHANTHIN-K) [Concomitant]
  3. NATTOKINASE (NATTOKINASE) [Concomitant]
  4. GARLIC (+) HAWTHORN (GARLIC, HAWTHORN) [Concomitant]

REACTIONS (7)
  - Arthralgia [None]
  - Constipation [None]
  - Aphthous stomatitis [None]
  - Rash [None]
  - Oedema peripheral [None]
  - Burning sensation [None]
  - Pain in extremity [None]
